FAERS Safety Report 7339936-0 (Version None)
Quarter: 2011Q1

REPORT INFORMATION
  Report Type: 
  Country: None (occurrence: None)
  Receive Date: 20110228
  Receipt Date: 20110215
  Transmission Date: 20110831
  Serious: Yes (Disabling, Other)
  Sender: FDA-Public Use
  Company Number: GB-GDP-11410033

PATIENT
  Sex: Male
  Weight: 63 kg

DRUGS (6)
  1. LIPITOR [Concomitant]
  2. MINOXIDIL [Concomitant]
  3. SIMVASTATIN [Concomitant]
  4. LISINOPRIL [Concomitant]
  5. TRIMETHOPRIM [Concomitant]
  6. DOXYCYCLINE [Suspect]
     Indication: PRODUCT USED FOR UNKNOWN INDICATION
     Dates: start: 20110208

REACTIONS (3)
  - AMOEBIC DYSENTERY [None]
  - PRURITUS [None]
  - RASH [None]
